FAERS Safety Report 18948805 (Version 1)
Quarter: 2021Q1

REPORT INFORMATION
  Report Type: Spontaneous
  Country: CN (occurrence: CN)
  Receive Date: 20210227
  Receipt Date: 20210227
  Transmission Date: 20210420
  Serious: Yes (Hospitalization, Other)
  Sender: FDA-Public Use
  Company Number: CN-LUPIN PHARMACEUTICALS INC.-2021-02328

PATIENT
  Age: 13 Year
  Sex: Female

DRUGS (6)
  1. METHYLPREDNISOLONE. [Suspect]
     Active Substance: METHYLPREDNISOLONE
     Indication: SYSTEMIC LUPUS ERYTHEMATOSUS
     Dosage: 0.5 GRAM, QD, FOR 2 DAYS DURING FIRST TO THIRD HOSPITALISATION. TOTAL CUMULATIVE DOSE PRIOR TO 8TH H
     Route: 065
     Dates: start: 2017
  2. MYCOPHENOLATE MOFETIL. [Suspect]
     Active Substance: MYCOPHENOLATE MOFETIL
     Indication: SYSTEMIC LUPUS ERYTHEMATOSUS
     Dosage: 0.75 GRAM, QD, RECEIVED DURING SUBSEQUENT TREATMENTS AFTER THIRD HOSPITALISATION
     Route: 065
  3. CYCLOPHOSPHAMIDE. [Suspect]
     Active Substance: CYCLOPHOSPHAMIDE
     Indication: SYSTEMIC LUPUS ERYTHEMATOSUS
     Dosage: 400 MILLIGRAM, TILL THE CUMULATIVE DOSE OF 1.2G (THREE TIMES) DURING FIRST TO THIRD HOSPITALISATION.
     Route: 042
     Dates: start: 2017
  4. HYDROXYCHLOROQUINE [Suspect]
     Active Substance: HYDROXYCHLOROQUINE
     Indication: SYSTEMIC LUPUS ERYTHEMATOSUS
     Dosage: 0.2 GRAM, QD, RECEIVED DURING SUBSEQUENT TREATMENTS AFTER THIRD HOSPITALISATION
     Route: 065
  5. METHYLPREDNISOLONE. [Suspect]
     Active Substance: METHYLPREDNISOLONE
     Dosage: 0.4 GRAM, QD (FINAL HIGH?DOSE METHYLPREDNISOLONE (0.4G DAILY FOR 2 DAYS) AND STOPPED)
     Route: 065
  6. TACROLIMUS. [Suspect]
     Active Substance: TACROLIMUS
     Indication: SYSTEMIC LUPUS ERYTHEMATOSUS
     Dosage: 3 MILLIGRAM, QD, RECEIVED DURING SUBSEQUENT TREATMENTS AFTER THIRD HOSPITALISATION
     Route: 065

REACTIONS (1)
  - Osteonecrosis [Recovering/Resolving]

NARRATIVE: CASE EVENT DATE: 201907
